FAERS Safety Report 14260317 (Version 1)
Quarter: 2017Q4

REPORT INFORMATION
  Report Type: Spontaneous
  Country: IE (occurrence: IE)
  Receive Date: 20171207
  Receipt Date: 20171207
  Transmission Date: 20180321
  Serious: Yes (Other)
  Sender: FDA-Public Use
  Company Number: IE-SA-2017SA240956

PATIENT
  Age: 30 Year
  Sex: Female

DRUGS (2)
  1. ALEMTUZUMAB [Suspect]
     Active Substance: ALEMTUZUMAB
     Indication: MULTIPLE SCLEROSIS
     Route: 041
  2. ALEMTUZUMAB [Suspect]
     Active Substance: ALEMTUZUMAB
     Indication: MULTIPLE SCLEROSIS
     Route: 041

REACTIONS (20)
  - Thrombotic microangiopathy [Unknown]
  - Vomiting [Unknown]
  - Urinary casts [Unknown]
  - Visual field defect [Unknown]
  - Platelet count decreased [Unknown]
  - Haemoglobin decreased [Unknown]
  - Headache [Unknown]
  - Pyrexia [Unknown]
  - Hypertension [Unknown]
  - Proteinuria [Unknown]
  - Haematuria [Unknown]
  - Blood creatinine increased [Unknown]
  - Anti-glomerular basement membrane antibody positive [Unknown]
  - Posterior reversible encephalopathy syndrome [Unknown]
  - Goodpasture^s syndrome [Unknown]
  - Seizure [Unknown]
  - Schistocytosis [Unknown]
  - Oliguria [Unknown]
  - Reticulocyte count increased [Unknown]
  - Haptoglobin decreased [Unknown]
